FAERS Safety Report 24967685 (Version 1)
Quarter: 2025Q1

REPORT INFORMATION
  Report Type: Spontaneous
  Country: IN (occurrence: IN)
  Receive Date: 20250214
  Receipt Date: 20250214
  Transmission Date: 20250408
  Serious: Yes (Death, Other)
  Sender: GALDERMA
  Company Number: IN-GALDERMA-IN2025001672

PATIENT

DRUGS (1)
  1. AKLIEF [Suspect]
     Active Substance: TRIFAROTENE
     Indication: Acne
     Route: 061
     Dates: start: 20241210

REACTIONS (1)
  - Myocardial infarction [Fatal]
